FAERS Safety Report 10098024 (Version 1)
Quarter: 2014Q2

REPORT INFORMATION
  Report Type: Spontaneous
  Country: US (occurrence: None)
  Receive Date: 20140421
  Receipt Date: 20140421
  Transmission Date: 20141212
  Serious: Yes (Death)
  Sender: FDA-Public Use
  Company Number: SP07701

PATIENT
  Age: 61 Year
  Sex: Female

DRUGS (2)
  1. XIFAXAN [Suspect]
     Route: 048
  2. VELETRI [Suspect]
     Indication: BLOOD PRESSURE INCREASED
     Dates: end: 201312

REACTIONS (1)
  - Malaise [None]
